FAERS Safety Report 21451771 (Version 1)
Quarter: 2022Q4

REPORT INFORMATION
  Report Type: Spontaneous
  Country: DE (occurrence: DE)
  Receive Date: 20221013
  Receipt Date: 20221013
  Transmission Date: 20230113
  Serious: Yes (Other)
  Sender: FDA-Public Use
  Company Number: DE-ROCHE-3187347

PATIENT
  Sex: Female

DRUGS (9)
  1. BENDAMUSTINE HYDROCHLORIDE [Suspect]
     Active Substance: BENDAMUSTINE HYDROCHLORIDE
     Indication: Diffuse large B-cell lymphoma
     Route: 042
     Dates: start: 20200528, end: 20201015
  2. LENALIDOMIDE [Suspect]
     Active Substance: LENALIDOMIDE
     Indication: Diffuse large B-cell lymphoma
     Route: 065
     Dates: start: 20210617, end: 20220907
  3. CYCLOPHOSPHAMIDE\DOXORUBICIN\PREDNISONE\VINCRISTINE [Suspect]
     Active Substance: CYCLOPHOSPHAMIDE\DOXORUBICIN\PREDNISONE\VINCRISTINE
     Indication: Diffuse large B-cell lymphoma
     Route: 065
     Dates: start: 20190628, end: 20190920
  4. MABTHERA [Suspect]
     Active Substance: RITUXIMAB
     Indication: Diffuse large B-cell lymphoma
     Route: 065
     Dates: start: 20190628, end: 20190920
  5. MABTHERA [Suspect]
     Active Substance: RITUXIMAB
     Dosage: UNK UNK, UNKNOWN FREQ.
     Route: 065
     Dates: start: 20200528, end: 20201015
  6. MABTHERA [Suspect]
     Active Substance: RITUXIMAB
     Dosage: UNK UNK, UNKNOWN FREQ.
     Route: 065
     Dates: start: 20210413, end: 20210525
  7. POLIVY [Suspect]
     Active Substance: POLATUZUMAB VEDOTIN-PIIQ
     Indication: Diffuse large B-cell lymphoma
     Route: 065
     Dates: start: 20200528, end: 20201015
  8. GEMCITABINE HYDROCHLORIDE\OXALIPLATIN [Suspect]
     Active Substance: GEMCITABINE HYDROCHLORIDE\OXALIPLATIN
     Indication: Diffuse large B-cell lymphoma
     Route: 065
     Dates: start: 20210413, end: 20210525
  9. TAFASITAMAB-CXIX [Suspect]
     Active Substance: TAFASITAMAB-CXIX
     Indication: Diffuse large B-cell lymphoma
     Route: 065
     Dates: start: 20210617, end: 20220907

REACTIONS (4)
  - Malignant neoplasm progression [Not Recovered/Not Resolved]
  - Cytomegalovirus infection [Not Recovered/Not Resolved]
  - Epstein-Barr virus infection [Not Recovered/Not Resolved]
  - Off label use [Unknown]

NARRATIVE: CASE EVENT DATE: 20200528
